FAERS Safety Report 12819369 (Version 1)
Quarter: 2016Q4

REPORT INFORMATION
  Report Type: Spontaneous
  Country: US (occurrence: US)
  Receive Date: 20161006
  Receipt Date: 20161006
  Transmission Date: 20170207
  Serious: Yes (Hospitalization)
  Sender: FDA-Public Use
  Company Number: None

PATIENT
  Age: 68 Year
  Sex: Male
  Weight: 123.4 kg

DRUGS (2)
  1. CASODEX [Suspect]
     Active Substance: BICALUTAMIDE
     Dosage: TO CONTINUE THRU 10/25/2016
     Dates: end: 20160913
  2. LEUPROLIDE ACETATE. [Suspect]
     Active Substance: LEUPROLIDE ACETATE
     Dates: end: 20160425

REACTIONS (4)
  - Abdominal pain [None]
  - Small intestinal obstruction [None]
  - Abdominal hernia [None]
  - Vomiting [None]

NARRATIVE: CASE EVENT DATE: 20160913
